FAERS Safety Report 11639169 (Version 3)
Quarter: 2015Q4

REPORT INFORMATION
  Report Type: Spontaneous
  Country: IT (occurrence: IT)
  Receive Date: 20151019
  Receipt Date: 20151028
  Transmission Date: 20160304
  Serious: Yes (Other)
  Sender: FDA-Public Use
  Company Number: IT-AUROBINDO-AUR-APL-2015-09225

PATIENT
  Age: 39 Year
  Sex: Female

DRUGS (16)
  1. QUETIAPINE FILM-COATED TABLET [Suspect]
     Active Substance: QUETIAPINE
     Indication: PSYCHOTIC DISORDER
  2. LITHIUM CARBONATE. [Suspect]
     Active Substance: LITHIUM CARBONATE
     Indication: PSYCHOTIC DISORDER
  3. LITHIUM CARBONATE. [Suspect]
     Active Substance: LITHIUM CARBONATE
     Indication: DEPRESSION
  4. LITHIUM CARBONATE. [Suspect]
     Active Substance: LITHIUM CARBONATE
     Indication: OBSESSIVE-COMPULSIVE DISORDER
  5. QUETIAPINE FILM-COATED TABLET [Suspect]
     Active Substance: QUETIAPINE
     Indication: OBSESSIVE-COMPULSIVE DISORDER
  6. LORAZEPAM FILM-COATED TABLETS [Suspect]
     Active Substance: LORAZEPAM
     Indication: DEPRESSION
  7. LORAZEPAM FILM-COATED TABLETS [Suspect]
     Active Substance: LORAZEPAM
     Indication: PSYCHOTIC DISORDER
  8. QUETIAPINE FILM-COATED TABLET [Suspect]
     Active Substance: QUETIAPINE
     Indication: BIPOLAR DISORDER
     Dosage: 25 MG DAILY
     Route: 048
  9. LORAZEPAM FILM-COATED TABLETS [Suspect]
     Active Substance: LORAZEPAM
     Indication: BIPOLAR DISORDER
     Dosage: 1.25 MG DAILY
     Route: 048
  10. LITHIUM CARBONATE. [Suspect]
     Active Substance: LITHIUM CARBONATE
     Indication: BIPOLAR DISORDER
     Dosage: 900 MG DAILY
     Route: 048
  11. LORAZEPAM FILM-COATED TABLETS [Suspect]
     Active Substance: LORAZEPAM
     Indication: OBSESSIVE-COMPULSIVE DISORDER
  12. ZUCLOPENTHIXOL DECANOATE [Suspect]
     Active Substance: ZUCLOPENTHIXOL DECANOATE
     Indication: BIPOLAR DISORDER
     Dosage: 200 MG CYCLICAL
     Route: 030
  13. ZUCLOPENTHIXOL DECANOATE [Suspect]
     Active Substance: ZUCLOPENTHIXOL DECANOATE
     Indication: PSYCHOTIC DISORDER
  14. QUETIAPINE FILM-COATED TABLET [Suspect]
     Active Substance: QUETIAPINE
     Indication: DEPRESSION
  15. ZUCLOPENTHIXOL DECANOATE [Suspect]
     Active Substance: ZUCLOPENTHIXOL DECANOATE
     Indication: OBSESSIVE-COMPULSIVE DISORDER
  16. ZUCLOPENTHIXOL DECANOATE [Suspect]
     Active Substance: ZUCLOPENTHIXOL DECANOATE
     Indication: DEPRESSION

REACTIONS (25)
  - Depressed mood [Recovering/Resolving]
  - Obsessive thoughts [Recovering/Resolving]
  - Anxiety [Recovering/Resolving]
  - Magical thinking [Recovering/Resolving]
  - Metabolic disorder [Recovering/Resolving]
  - Dysphoria [Recovering/Resolving]
  - Disorientation [Recovering/Resolving]
  - Paralysis [Recovering/Resolving]
  - Cotard^s syndrome [Recovering/Resolving]
  - Compulsions [Recovering/Resolving]
  - Confusional state [Recovering/Resolving]
  - Psychotic disorder [Recovering/Resolving]
  - Hypothyroidism [Unknown]
  - Electrocardiogram QT prolonged [Recovering/Resolving]
  - Extrapyramidal disorder [Recovering/Resolving]
  - Obesity [Recovering/Resolving]
  - Social avoidant behaviour [Recovering/Resolving]
  - Anhedonia [Recovering/Resolving]
  - Hypersomnia [Recovering/Resolving]
  - Asthenia [Recovering/Resolving]
  - Apathy [Recovering/Resolving]
  - Abulia [Recovering/Resolving]
  - Amimia [Recovering/Resolving]
  - Arrhythmia [Recovering/Resolving]
  - Overweight [Recovering/Resolving]
